FAERS Safety Report 25680167 (Version 1)
Quarter: 2025Q3

REPORT INFORMATION
  Report Type: Spontaneous
  Country: US (occurrence: US)
  Receive Date: 20250814
  Receipt Date: 20250814
  Transmission Date: 20251020
  Serious: Yes (Hospitalization)
  Sender: ROCHE
  Company Number: US-ROCHE-10000355178

PATIENT
  Age: 69 Year
  Sex: Male

DRUGS (3)
  1. TOCILIZUMAB [Suspect]
     Active Substance: TOCILIZUMAB
     Indication: Immunosuppression
     Route: 065
  2. PENTAMIDINE [Suspect]
     Active Substance: PENTAMIDINE
     Indication: Immunosuppression
     Route: 065
  3. RUXOLITINIB [Suspect]
     Active Substance: RUXOLITINIB
     Indication: Immunosuppression
     Route: 065

REACTIONS (2)
  - Pneumonia [Unknown]
  - Cellulitis [Unknown]
